FAERS Safety Report 10510947 (Version 1)
Quarter: 2014Q4

REPORT INFORMATION
  Report Type: Spontaneous
  Country: US (occurrence: None)
  Receive Date: 20141009
  Receipt Date: 20141009
  Transmission Date: 20150528
  Serious: No
  Sender: FDA-Public Use
  Company Number: None

PATIENT
  Age: 64 Year
  Sex: Female

DRUGS (1)
  1. ENBREL [Suspect]
     Active Substance: ETANERCEPT
     Dosage: 50 MG, Q5D, SQ
     Route: 058
     Dates: start: 20140506

REACTIONS (3)
  - Disturbance in attention [None]
  - Irritability [None]
  - Crying [None]

NARRATIVE: CASE EVENT DATE: 20140901
